FAERS Safety Report 4785946-7 (Version None)
Quarter: 2005Q3

REPORT INFORMATION
  Report Type: 
  Country: None (occurrence: None)
  Receive Date: 20050930
  Receipt Date: 20050919
  Transmission Date: 20060218
  Serious: Yes (Hospitalization)
  Sender: FDA-Public Use
  Company Number: GXKR2005GB01647

PATIENT
  Age: 83 Year
  Sex: Female

DRUGS (4)
  1. ENALAPRIL MALEATE [Suspect]
     Indication: MYOCARDIAL INFARCTION
     Dosage: SEE IMAGE
     Route: 048
  2. IMDUR [Suspect]
  3. ASPIRIN [Concomitant]
  4. FUROSEMIDE [Concomitant]

REACTIONS (5)
  - DIZZINESS [None]
  - DRUG INTERACTION [None]
  - HYPOTENSION [None]
  - LOSS OF CONSCIOUSNESS [None]
  - ORTHOSTATIC HYPOTENSION [None]
